FAERS Safety Report 12764166 (Version 3)
Quarter: 2018Q2

REPORT INFORMATION
  Report Type: Spontaneous
  Country: JP (occurrence: JP)
  Receive Date: 20160920
  Receipt Date: 20180528
  Transmission Date: 20180711
  Serious: Yes (Hospitalization, Other)
  Sender: FDA-Public Use
  Company Number: JP-BAXALTA-2016BXJ006206

PATIENT
  Age: 41 Year
  Sex: Male
  Weight: 75 kg

DRUGS (11)
  1. FEIBA NF [Suspect]
     Active Substance: ANTI-INHIBITOR COAGULANT COMPLEX
     Indication: HAEMOSTASIS
     Dosage: 90 IU/KG, 2X/DAY:BID
     Dates: start: 20160821
  2. FEIBA NF [Suspect]
     Active Substance: ANTI-INHIBITOR COAGULANT COMPLEX
     Dosage: 90 IU/KG, 2X/DAY:BID
     Dates: start: 2016
  3. ADVATE [Suspect]
     Active Substance: ANTIHEMOPHILIC FACTOR, HUMAN RECOMBINANT
     Indication: FACTOR VIII DEFICIENCY
     Dosage: 1000 IU, 1X A DAY
     Route: 042
     Dates: start: 20160601, end: 20160601
  4. ADVATE [Suspect]
     Active Substance: ANTIHEMOPHILIC FACTOR, HUMAN RECOMBINANT
     Indication: HAEMOSTASIS
     Dosage: 1000 IU, 2X A DAY
     Route: 042
     Dates: start: 20160708, end: 20160709
  5. FEIBA NF [Suspect]
     Active Substance: ANTI-INHIBITOR COAGULANT COMPLEX
     Dosage: 90 UNK, 1X/DAY:QD
     Dates: start: 201608
  6. ADVATE [Suspect]
     Active Substance: ANTIHEMOPHILIC FACTOR, HUMAN RECOMBINANT
     Indication: FACTOR VIII DEFICIENCY
     Dosage: 2000 IU, 1X A DAY
     Route: 042
     Dates: start: 20160601, end: 20160601
  7. ADVATE [Suspect]
     Active Substance: ANTIHEMOPHILIC FACTOR, HUMAN RECOMBINANT
     Indication: SURGERY
     Dosage: 2000 IU, 1X A DAY
     Route: 042
     Dates: start: 20160602, end: 20160602
  8. ADVATE [Suspect]
     Active Substance: ANTIHEMOPHILIC FACTOR, HUMAN RECOMBINANT
     Dosage: 2000 IU, 1X A DAY
     Route: 042
     Dates: start: 20160707, end: 20160707
  9. ADVATE [Suspect]
     Active Substance: ANTIHEMOPHILIC FACTOR, HUMAN RECOMBINANT
     Indication: SURGERY
     Dosage: 6000 IU, TOTAL
     Route: 042
     Dates: start: 20160630, end: 20160707
  10. ADVATE [Suspect]
     Active Substance: ANTIHEMOPHILIC FACTOR, HUMAN RECOMBINANT
     Dosage: 2000 IU, 1X A DAY
     Route: 042
     Dates: start: 20160630, end: 20160630
  11. ADVATE [Suspect]
     Active Substance: ANTIHEMOPHILIC FACTOR, HUMAN RECOMBINANT
     Dosage: 1000 IU, 1X A DAY
     Route: 042
     Dates: start: 20160710, end: 20160713

REACTIONS (4)
  - Muscle haemorrhage [Recovered/Resolved]
  - Haemarthrosis [Recovered/Resolved]
  - Factor VIII inhibition [Not Recovered/Not Resolved]
  - Fibrin D dimer increased [Unknown]

NARRATIVE: CASE EVENT DATE: 201608
